FAERS Safety Report 6356724-2 (Version None)
Quarter: 2009Q3

REPORT INFORMATION
  Report Type: 
  Country: None (occurrence: None)
  Receive Date: 20090911
  Receipt Date: 20090911
  Transmission Date: 20100115
  Serious: Yes (Other)
  Sender: FDA-Public Use
  Company Number: None

PATIENT
  Age: 49 Year
  Sex: Male

DRUGS (2)
  1. RIBAVIRIN [Suspect]
     Indication: HEPATITIS C
     Dosage: 600MG TWICE DAILY PO
     Route: 048
     Dates: start: 20090501, end: 20090909
  2. PEG-INTRON [Suspect]
     Dosage: 150MG WEEKLY SQ
     Dates: start: 20090501, end: 20090909

REACTIONS (1)
  - VISION BLURRED [None]
